FAERS Safety Report 8484502-7 (Version None)
Quarter: 2012Q3

REPORT INFORMATION
  Report Type: 
  Country: None (occurrence: None)
  Receive Date: 20120703
  Receipt Date: 20120622
  Transmission Date: 20120928
  Serious: Yes (Hospitalization)
  Sender: FDA-Public Use
  Company Number: US-MYLANLABS-2012S1012718

PATIENT
  Age: 71 Year
  Sex: Female

DRUGS (7)
  1. LOVASTATIN [Suspect]
     Indication: BLOOD CHOLESTEROL INCREASED
     Route: 048
     Dates: start: 20120301, end: 20120606
  2. LOVASTATIN [Suspect]
     Route: 048
     Dates: end: 20120301
  3. OMEPRAZOLE [Concomitant]
     Indication: GASTROOESOPHAGEAL REFLUX DISEASE
  4. AMLODIPINE [Concomitant]
     Indication: BLOOD PRESSURE INCREASED
  5. HYDROCHLOROTHIAZIDE [Concomitant]
     Dates: end: 20120606
  6. DIOVAN [Concomitant]
     Indication: BLOOD PRESSURE INCREASED
     Dates: end: 20120606
  7. LANTUS [Concomitant]
     Indication: DIABETES MELLITUS

REACTIONS (5)
  - RENAL FAILURE [None]
  - NAUSEA [None]
  - FATIGUE [None]
  - PAIN IN EXTREMITY [None]
  - ASTHENIA [None]
